FAERS Safety Report 8773165 (Version 3)
Quarter: 2013Q2

REPORT INFORMATION
  Report Type: Report from Study
  Country: AU (occurrence: AU)
  Receive Date: 20120907
  Receipt Date: 20130426
  Transmission Date: 20140414
  Serious: Yes (Other)
  Sender: FDA-Public Use
  Company Number: AU-ROCHE-1115132

PATIENT
  Sex: Female
  Weight: 73.5 kg

DRUGS (7)
  1. RITUXIMAB [Suspect]
     Indication: RHEUMATOID ARTHRITIS
     Dosage: 1 G, 2 WEEKS APART
     Route: 048
     Dates: start: 20061003
  2. RITUXIMAB [Suspect]
     Route: 065
     Dates: start: 20061023
  3. ADALIMUMAB [Concomitant]
  4. METHOTREXATE [Concomitant]
     Indication: RHEUMATOID ARTHRITIS
     Route: 048
     Dates: start: 1995, end: 20050822
  5. METHOTREXATE [Concomitant]
     Route: 048
     Dates: start: 20100830
  6. PREDNISOLON [Concomitant]
     Indication: RHEUMATOID ARTHRITIS
     Dosage: 10-25 MG DAILY
     Route: 048
     Dates: start: 1998
  7. ARAVA [Concomitant]
     Indication: RHEUMATOID ARTHRITIS
     Route: 048
     Dates: start: 20060213

REACTIONS (2)
  - Nervous system disorder [Unknown]
  - Nuclear magnetic resonance imaging abnormal [Unknown]
